FAERS Safety Report 19417776 (Version 1)
Quarter: 2021Q2

REPORT INFORMATION
  Report Type: Spontaneous
  Country: KZ (occurrence: KZ)
  Receive Date: 20210615
  Receipt Date: 20210615
  Transmission Date: 20210717
  Serious: Yes (Other)
  Sender: FDA-Public Use
  Company Number: KZ-SUN PHARMACEUTICAL INDUSTRIES LTD-2021R1-300045

PATIENT
  Age: 27 Year
  Sex: Female

DRUGS (1)
  1. DROSPIRENONE/ ETHINYL ESTRADIOL [Suspect]
     Active Substance: DROSPIRENONE\ETHINYL ESTRADIOL
     Indication: UNWANTED PREGNANCY
     Dosage: 3 MG/0.02 MG , UNK
     Route: 065

REACTIONS (2)
  - Lacunar stroke [Recovered/Resolved]
  - Cerebellar hypoplasia [Unknown]
